FAERS Safety Report 9246349 (Version 3)
Quarter: 2013Q3

REPORT INFORMATION
  Report Type: Report from Study
  Country: BR (occurrence: BR)
  Receive Date: 20130422
  Receipt Date: 20130806
  Transmission Date: 20140515
  Serious: Yes (Other)
  Sender: FDA-Public Use
  Company Number: PHHY2013BR038732

PATIENT
  Sex: Male

DRUGS (9)
  1. DIOVAN [Suspect]
     Indication: HYPERTENSION
     Dosage: 160 MG, A DAY
     Route: 048
  2. DIOVAN [Suspect]
     Dosage: 80 MG, A DAY
     Route: 048
  3. DIOVAN [Suspect]
     Dosage: 80 MG, (2 TABLETS IN MORNING AND 1 TABLET AT NIGHT)
     Route: 048
  4. GABAPENTIN [Concomitant]
     Indication: DIABETES MELLITUS
     Dosage: 2 DF (400 MG), DAILY
     Route: 048
  5. BENERVA [Concomitant]
     Indication: PAIN IN EXTREMITY
     Dosage: 1 DF, DAILY
     Route: 048
  6. ANCORON [Concomitant]
     Indication: CARDIAC DISORDER
     Dosage: 1 DF (200 MG), DAILY
     Route: 048
  7. NORIPURUM [Concomitant]
     Indication: ANAEMIA
     Dosage: 1 DF (1000 MG), DAILY
     Route: 048
  8. CALCIUM [Concomitant]
     Indication: BONE DISORDER
     Dosage: 1 DF (1000MG), A DAY
     Route: 048
  9. VITAMIN D [Concomitant]
     Indication: BLOOD CALCIUM ABNORMAL
     Dosage: 1 DF (400MG), A DAY
     Route: 048

REACTIONS (4)
  - Fall [Recovered/Resolved]
  - Blood pressure fluctuation [Recovered/Resolved]
  - Urinary tract infection [Recovered/Resolved]
  - Incorrect dose administered [Unknown]
